FAERS Safety Report 4786539-8 (Version None)
Quarter: 2005Q3

REPORT INFORMATION
  Report Type: 
  Country: None (occurrence: None)
  Receive Date: 20050927
  Receipt Date: 20050706
  Transmission Date: 20060218
  Serious: No
  Sender: FDA-Public Use
  Company Number: USA0507102337

PATIENT
  Age: 23 Year
  Sex: Female

DRUGS (2)
  1. STRATTERA [Suspect]
     Dosage: 80 MG
  2. ZYPREXA [Suspect]
     Indication: RESTLESSNESS
     Dosage: 2.5 MG AT BEDTIME

REACTIONS (3)
  - HEADACHE [None]
  - RESTLESSNESS [None]
  - SOMNOLENCE [None]
